FAERS Safety Report 9894642 (Version 2)
Quarter: 2014Q1

REPORT INFORMATION
  Report Type: Report from Study
  Country: US (occurrence: US)
  Receive Date: 20140213
  Receipt Date: 20140304
  Transmission Date: 20141002
  Serious: Yes (Hospitalization)
  Sender: FDA-Public Use
  Company Number: PHEH2014US002971

PATIENT
  Age: 48 Year
  Sex: Female

DRUGS (3)
  1. MYFORTIC [Suspect]
     Indication: SYSTEMIC LUPUS ERYTHEMATOSUS
     Dosage: 360 MG, TID
     Route: 048
     Dates: end: 201312
  2. MYFORTIC [Suspect]
     Dosage: 360 MG, BID
     Route: 048
     Dates: start: 201312
  3. MYFORTIC [Suspect]
     Dosage: 360 MG, QD
     Route: 048

REACTIONS (3)
  - Systemic lupus erythematosus [Unknown]
  - Pneumonia [Unknown]
  - White blood cell count decreased [Unknown]
